FAERS Safety Report 8344422-5 (Version None)
Quarter: 2012Q2

REPORT INFORMATION
  Report Type: 
  Country: None (occurrence: None)
  Receive Date: 20120508
  Receipt Date: 20120502
  Transmission Date: 20120825
  Serious: Yes (Hospitalization)
  Sender: FDA-Public Use
  Company Number: US-BAYER-2011-112037

PATIENT
  Age: 36 Year
  Sex: Female
  Weight: 59.864 kg

DRUGS (10)
  1. JUICE PLUS [Concomitant]
     Dosage: UNK
     Dates: start: 20100501
  2. XOPENEX [Concomitant]
     Dosage: 1-2 PUFFS AS NEEDED
  3. YAZ [Suspect]
     Indication: MENORRHAGIA
  4. YAZ [Suspect]
     Indication: PREMENSTRUAL SYNDROME
     Dosage: UNK
     Dates: start: 20080501, end: 20100510
  5. TYLENOL (CAPLET) [Concomitant]
     Indication: ABDOMINAL PAIN UPPER
     Dosage: UNK UNK, TID
     Dates: start: 20100301, end: 20100501
  6. ALLEGRA [Concomitant]
  7. XYZAL [Concomitant]
     Indication: MULTIPLE ALLERGIES
     Dosage: 5 MG, QD
     Dates: start: 20100501
  8. IBUPROFEN (ADVIL) [Concomitant]
     Indication: ABDOMINAL PAIN UPPER
     Dosage: UNK UNK, TID
     Dates: start: 20100301, end: 20100501
  9. IBUPROFEN (ADVIL) [Concomitant]
     Indication: BACK PAIN
  10. TYLENOL (CAPLET) [Concomitant]
     Indication: BACK PAIN

REACTIONS (11)
  - BILIARY DYSKINESIA [None]
  - ABDOMINAL DISCOMFORT [None]
  - ANXIETY [None]
  - BILIARY COLIC [None]
  - PAIN [None]
  - EPIGASTRIC DISCOMFORT [None]
  - EMOTIONAL DISTRESS [None]
  - ABDOMINAL PAIN UPPER [None]
  - CHEST DISCOMFORT [None]
  - NAUSEA [None]
  - GENERAL PHYSICAL HEALTH DETERIORATION [None]
